FAERS Safety Report 5568592-7 (Version None)
Quarter: 2007Q4

REPORT INFORMATION
  Report Type: 
  Country: None (occurrence: None)
  Receive Date: 20071220
  Receipt Date: 20071214
  Transmission Date: 20080405
  Serious: Yes (Hospitalization)
  Sender: FDA-Public Use
  Company Number: US-MERCK-0705USA02655

PATIENT
  Age: 53 Year
  Sex: Female
  Weight: 65 kg

DRUGS (10)
  1. FOSAMAX [Suspect]
     Indication: OSTEOPOROSIS
     Route: 048
     Dates: end: 20060501
  2. FOSAMAX [Suspect]
     Route: 048
     Dates: start: 19980301
  3. CORTICOSTEROIDS (UNSPECIFIED) [Concomitant]
     Route: 065
     Dates: start: 19990101
  4. MORPHINE [Concomitant]
     Indication: SPINAL COMPRESSION FRACTURE
     Route: 065
     Dates: start: 19980101, end: 20060101
  5. HUMIRA [Concomitant]
     Route: 065
     Dates: end: 20060101
  6. METHOTREXATE [Concomitant]
     Route: 065
     Dates: end: 20060101
  7. FENTANYL [Concomitant]
     Indication: SPINAL COMPRESSION FRACTURE
     Route: 065
     Dates: start: 20060101
  8. ZOLOFT [Concomitant]
     Indication: DEPRESSION
     Route: 065
     Dates: start: 19980101
  9. HYDROCODONE BITARTRATE [Concomitant]
     Indication: BREAKTHROUGH PAIN
     Route: 065
     Dates: start: 20060101, end: 20070101
  10. [THERAPY UNSPECIFIED] [Concomitant]
     Route: 065

REACTIONS (15)
  - ACUTE SINUSITIS [None]
  - ANXIETY [None]
  - CHONDROCALCINOSIS PYROPHOSPHATE [None]
  - DEPRESSION [None]
  - HERPES ZOSTER [None]
  - IMPAIRED GASTRIC EMPTYING [None]
  - LYMPHADENITIS [None]
  - OESOPHAGEAL CANDIDIASIS [None]
  - ORAL HERPES [None]
  - OSTEOMYELITIS [None]
  - OSTEONECROSIS [None]
  - PHARYNGEAL CYST [None]
  - RHEUMATOID ARTHRITIS [None]
  - RIB FRACTURE [None]
  - THORACIC VERTEBRAL FRACTURE [None]
